FAERS Safety Report 8028730-3 (Version None)
Quarter: 2012Q1

REPORT INFORMATION
  Report Type: 
  Country: None (occurrence: None)
  Receive Date: 20120106
  Receipt Date: 20120103
  Transmission Date: 20120608
  Serious: Yes (Hospitalization, Disabling)
  Sender: FDA-Public Use
  Company Number: US-MERCK-1201USA00227

PATIENT
  Sex: Female

DRUGS (2)
  1. FOSAMAX PLUS D [Suspect]
     Route: 048
     Dates: start: 20000101, end: 20080301
  2. FOSAMAX [Suspect]
     Route: 048
     Dates: start: 20000101, end: 20080301

REACTIONS (5)
  - DEVICE MALFUNCTION [None]
  - FRACTURE NONUNION [None]
  - FEMUR FRACTURE [None]
  - INCISION SITE INFECTION [None]
  - IMPAIRED HEALING [None]
